FAERS Safety Report 8646124 (Version 3)
Quarter: 2013Q1

REPORT INFORMATION
  Report Type: Spontaneous
  Country: US (occurrence: US)
  Receive Date: 20120702
  Receipt Date: 20130302
  Transmission Date: 20140127
  Serious: Yes (Other)
  Sender: FDA-Public Use
  Company Number: US-US-EMD SERONO, INC.-7143164

PATIENT
  Sex: Female

DRUGS (3)
  1. REBIF [Suspect]
     Indication: MULTIPLE SCLEROSIS
     Route: 058
     Dates: start: 20021216
  2. LISINOPRIL [Concomitant]
     Indication: HYPERTENSION
  3. PRINIVIL [Concomitant]
     Indication: HYPERTENSION

REACTIONS (8)
  - Limb crushing injury [Recovered/Resolved]
  - Glucose tolerance impaired [Unknown]
  - Foot fracture [Recovered/Resolved]
  - Intervertebral disc disorder [Recovered/Resolved]
  - Fall [Unknown]
  - Dizziness [Recovered/Resolved]
  - Injection site haemorrhage [Recovering/Resolving]
  - Hypothyroidism [Unknown]
